FAERS Safety Report 8859131 (Version 2)
Quarter: 2012Q4

REPORT INFORMATION
  Report Type: 
  Country: US (occurrence: US)
  Receive Date: 20121024
  Receipt Date: 20121206
  Transmission Date: 20130627
  Serious: No
  Sender: FDA-Public Use
  Company Number: US-B.I. PHARMACEUTICALS,INC./RIDGEFIELD-2012-BP-25411BP

PATIENT
  Sex: Female
  Weight: 52 kg

DRUGS (9)
  1. SPIRIVA [Suspect]
     Indication: CHRONIC OBSTRUCTIVE PULMONARY DISEASE
     Dosage: 18 mcg
     Route: 055
     Dates: start: 201208, end: 201209
  2. RESCUE INHALER [Concomitant]
     Indication: DYSPNOEA
     Route: 055
  3. AZOR [Concomitant]
     Indication: HYPERTENSION
     Route: 048
  4. TOPOROL XL [Concomitant]
     Indication: HYPERTENSION
     Dosage: 25 mg
     Route: 048
  5. VITIMINS [Concomitant]
     Indication: SUPPLEMENTATION THERAPY
  6. VITIMIN C [Concomitant]
     Indication: SUPPLEMENTATION THERAPY
  7. FISH OIL [Concomitant]
     Indication: SUPPLEMENTATION THERAPY
  8. VITIMIN B [Concomitant]
     Indication: SUPPLEMENTATION THERAPY
     Dosage: 50 mg
     Route: 048
  9. ALBUTEROL [Concomitant]

REACTIONS (3)
  - Upper respiratory tract congestion [Not Recovered/Not Resolved]
  - Dry mouth [Not Recovered/Not Resolved]
  - Constipation [Not Recovered/Not Resolved]
